FAERS Safety Report 10239186 (Version 1)
Quarter: 2014Q2

REPORT INFORMATION
  Report Type: Spontaneous
  Country: US (occurrence: US)
  Receive Date: 20140616
  Receipt Date: 20140616
  Transmission Date: 20141212
  Serious: Yes (Death)
  Sender: FDA-Public Use
  Company Number: US-GLAXOSMITHKLINE-A1076994A

PATIENT
  Age: 59 Year
  Sex: Female

DRUGS (1)
  1. ADVAIR [Suspect]
     Indication: ASTHMA
     Dates: start: 20130607

REACTIONS (1)
  - Hepatic failure [Fatal]
